FAERS Safety Report 18631333 (Version 1)
Quarter: 2020Q4

REPORT INFORMATION
  Report Type: Spontaneous
  Country: US (occurrence: US)
  Receive Date: 20201218
  Receipt Date: 20201218
  Transmission Date: 20210114
  Serious: No
  Sender: FDA-Public Use
  Company Number: US-TEVA-2020-US-1859088

PATIENT
  Sex: Female

DRUGS (3)
  1. DIAZEPAM. [Suspect]
     Active Substance: DIAZEPAM
     Indication: ANXIETY
     Dosage: USING THIS MEDICATION FROM 3 YEARS
     Route: 065
  2. DIAZEPAM. [Suspect]
     Active Substance: DIAZEPAM
     Indication: BALANCE DISORDER
  3. DIAZEPAM. [Suspect]
     Active Substance: DIAZEPAM
     Indication: ABDOMINAL DISCOMFORT

REACTIONS (2)
  - Drug ineffective [Unknown]
  - Product used for unknown indication [Unknown]

NARRATIVE: CASE EVENT DATE: 2020
